FAERS Safety Report 25789344 (Version 1)
Quarter: 2025Q3

REPORT INFORMATION
  Report Type: Spontaneous
  Country: US (occurrence: US)
  Receive Date: 20250911
  Receipt Date: 20250911
  Transmission Date: 20251021
  Serious: No
  Sender: BAUSCH AND LOMB
  Company Number: US-BAUSCHBL-2025BNL015836

PATIENT
  Sex: Female

DRUGS (3)
  1. DIETARY SUPPLEMENT [Suspect]
     Active Substance: DIETARY SUPPLEMENT
     Indication: Dry eye
     Route: 065
  2. LUMIFY [Suspect]
     Active Substance: BRIMONIDINE TARTRATE
     Indication: Erythema
     Route: 065
  3. LUMIFY [Suspect]
     Active Substance: BRIMONIDINE TARTRATE

REACTIONS (6)
  - Drug ineffective [Unknown]
  - Product quality issue [Unknown]
  - Product container issue [Unknown]
  - Product colour issue [Unknown]
  - Poor quality product administered [Unknown]
  - Suspected counterfeit product [Unknown]
